FAERS Safety Report 8512815-9 (Version None)
Quarter: 2012Q3

REPORT INFORMATION
  Report Type: 
  Country: None (occurrence: None)
  Receive Date: 20120716
  Receipt Date: 20120705
  Transmission Date: 20120928
  Serious: Yes (Hospitalization)
  Sender: FDA-Public Use
  Company Number: US-ALEXION-A201201246

PATIENT
  Sex: Female
  Weight: 41.9 kg

DRUGS (9)
  1. ATIVAN [Concomitant]
     Indication: ANAEMIA MACROCYTIC
     Dosage: 1 MG,Q 6 HRS PRN
     Route: 048
  2. IBUPROFEN [Concomitant]
     Dosage: 75 MG, UNK
     Route: 048
     Dates: end: 20120101
  3. SOLIRIS [Suspect]
     Dosage: 900 MG, Q2W
     Route: 042
  4. ATIVAN [Concomitant]
     Indication: BUDD-CHIARI SYNDROME
  5. HYDROCODONE BITARTRATE + ACETAMINOPHEN [Concomitant]
     Dosage: 10-325 MG Q 6 HRS PRN
     Route: 048
  6. SOLIRIS [Suspect]
     Indication: PAROXYSMAL NOCTURNAL HAEMOGLOBINURIA
     Dosage: 600 MG, QW
     Route: 042
     Dates: start: 20060901
  7. FUROSEMIDE [Concomitant]
     Indication: ASCITES
     Dosage: 40 MG, QD
     Route: 048
  8. SPIRONOLACTONE [Concomitant]
     Indication: ASCITES
     Dosage: 100 MG, QD
     Route: 048
  9. WARFARIN SODIUM [Concomitant]
     Indication: ASCITES
     Dosage: 3 MG, QD
     Route: 048

REACTIONS (8)
  - ASCITES [None]
  - SINUSITIS [None]
  - THROMBOCYTOPENIA [None]
  - PYREXIA [None]
  - HAEMOGLOBIN DECREASED [None]
  - DIARRHOEA [None]
  - DECREASED APPETITE [None]
  - NAUSEA [None]
